FAERS Safety Report 7837790 (Version 2)
Quarter: 2013Q2

REPORT INFORMATION
  Report Type: Spontaneous
  Country: US (occurrence: US)
  Receive Date: 20110302
  Receipt Date: 20130424
  Transmission Date: 20140414
  Serious: Yes (Hospitalization, Other)
  Sender: FDA-Public Use
  Company Number: US-PFIZER INC-2010057669

PATIENT
  Age: 4 Year
  Sex: Female

DRUGS (5)
  1. DILANTIN [Suspect]
     Indication: PARTIAL SEIZURES
     Dosage: 350 MG, UNK
     Route: 042
     Dates: start: 19960722
  2. DILANTIN [Suspect]
     Dosage: 54 MG, 3X/DAY
     Route: 042
     Dates: start: 19960723
  3. DILANTIN [Suspect]
     Dosage: 54 MG, 1X/DAY
     Route: 042
     Dates: start: 19960727
  4. DILANTIN [Suspect]
     Indication: PARTIAL SEIZURES
     Dosage: 100 MG, 1X/DAY
     Route: 048
     Dates: start: 19960727
  5. DILANTIN [Suspect]
     Dosage: 100 MG, 2X/DAY
     Route: 048
     Dates: start: 19960728

REACTIONS (1)
  - Stevens-Johnson syndrome [Recovering/Resolving]
